FAERS Safety Report 9437019 (Version 1)
Quarter: 2013Q3

REPORT INFORMATION
  Report Type: Spontaneous
  Country: JP (occurrence: JP)
  Receive Date: 20130802
  Receipt Date: 20130802
  Transmission Date: 20140515
  Serious: Yes (Other)
  Sender: FDA-Public Use
  Company Number: JP-PFIZER INC-2013223874

PATIENT
  Age: 91 Year
  Sex: Male

DRUGS (2)
  1. CELECOX [Suspect]
     Indication: ANALGESIC THERAPY
     Dosage: 200 MG, 2X/DAY
     Route: 048
  2. LOXONIN [Concomitant]
     Indication: ANALGESIC THERAPY
     Dosage: UNK

REACTIONS (3)
  - Delirium [Unknown]
  - Disorientation [Unknown]
  - Restlessness [Unknown]
